FAERS Safety Report 21208821 (Version 1)
Quarter: 2022Q3

REPORT INFORMATION
  Report Type: Spontaneous
  Country: NL (occurrence: NL)
  Receive Date: 20220812
  Receipt Date: 20220812
  Transmission Date: 20221027
  Serious: Yes (Other)
  Sender: FDA-Public Use
  Company Number: NL-NOVARTISPH-NVSC2022NL182524

PATIENT
  Age: 2 Year
  Sex: Male

DRUGS (1)
  1. PREDNISOLONE [Suspect]
     Active Substance: PREDNISOLONE
     Indication: Vascular neoplasm
     Dosage: 2 MG/KG
     Route: 065

REACTIONS (6)
  - Cushing^s syndrome [Unknown]
  - Growth retardation [Unknown]
  - Vascular neoplasm [Unknown]
  - Malignant neoplasm progression [Unknown]
  - Product use in unapproved indication [Unknown]
  - Therapeutic product effect incomplete [Unknown]
